FAERS Safety Report 9778180 (Version 1)
Quarter: 2013Q4

REPORT INFORMATION
  Report Type: Spontaneous
  Country: JP (occurrence: JP)
  Receive Date: 20131223
  Receipt Date: 20131223
  Transmission Date: 20140711
  Serious: Yes (Other)
  Sender: FDA-Public Use
  Company Number: JP-JNJFOC-20131209112

PATIENT
  Sex: 0

DRUGS (2)
  1. RISPERDAL [Suspect]
     Indication: BEHAVIOURAL AND PSYCHIATRIC SYMPTOMS OF DEMENTIA
     Route: 048
  2. ARICEPT [Concomitant]
     Indication: DEMENTIA
     Route: 048

REACTIONS (2)
  - Dementia [Unknown]
  - Off label use [Unknown]
